FAERS Safety Report 5274645-3 (Version None)
Quarter: 2007Q1

REPORT INFORMATION
  Report Type: 
  Country: None (occurrence: None)
  Receive Date: 20070320
  Receipt Date: 20070308
  Transmission Date: 20070707
  Serious: Yes (Other)
  Sender: FDA-Public Use
  Company Number: 2006PV026452

PATIENT
  Age: 49 Year
  Sex: Male
  Weight: 97.5234 kg

DRUGS (22)
  1. BYETTA [Suspect]
     Indication: DIABETES MELLITUS NON-INSULIN-DEPENDENT
     Dosage: SEE IMAGE
     Route: 058
     Dates: start: 20060726, end: 20060927
  2. BYETTA [Suspect]
     Indication: DIABETES MELLITUS NON-INSULIN-DEPENDENT
     Dosage: SEE IMAGE
     Route: 058
     Dates: start: 20060927
  3. BYETTA [Suspect]
  4. HUMALOG [Concomitant]
  5. METFORMIN [Concomitant]
  6. AMARYL [Concomitant]
  7. NORVASC [Concomitant]
  8. VERAPAMIL [Concomitant]
  9. VYTORIN [Concomitant]
  10. CYMBALTA [Concomitant]
  11. ESTER-C [Concomitant]
  12. POTASSIUM ACETATE [Concomitant]
  13. ALTACE [Concomitant]
  14. CHROMIUM PICOLINATE [Concomitant]
  15. SPIRIVA [Concomitant]
  16. MAGNESIUM [Concomitant]
  17. PATANOL [Concomitant]
  18. NASACORT [Concomitant]
  19. ALLEGRA [Concomitant]
  20. PREVACID [Concomitant]
  21. ANDROGEL [Concomitant]
  22. NPH [Concomitant]

REACTIONS (10)
  - ARRHYTHMIA [None]
  - ARTERIOSCLEROSIS [None]
  - BLOOD GLUCOSE DECREASED [None]
  - FALL [None]
  - HYPOGLYCAEMIC UNCONSCIOUSNESS [None]
  - PALPITATIONS [None]
  - TACHYCARDIA [None]
  - TREATMENT NONCOMPLIANCE [None]
  - WEIGHT DECREASED [None]
  - WOLFF-PARKINSON-WHITE SYNDROME [None]
